FAERS Safety Report 6033215-X (Version None)
Quarter: 2009Q1

REPORT INFORMATION
  Report Type: 
  Country: None (occurrence: None)
  Receive Date: 20090109
  Receipt Date: 20090102
  Transmission Date: 20090719
  Serious: Yes (Other)
  Sender: FDA-Public Use
  Company Number: GB-ELI_LILLY_AND_COMPANY-GB200901000147

PATIENT
  Age: 67 Year
  Sex: Male

DRUGS (15)
  1. HUMALOG MIX 50/50 [Suspect]
  2. HUMALOG MIX 75/25 [Suspect]
  3. EXUBERA [Concomitant]
     Indication: DIABETES MELLITUS
     Dates: start: 20070906
  4. ASPIRIN [Concomitant]
     Dosage: 75 MG, UNK
     Route: 048
  5. MOMETASONE FUROATE [Concomitant]
     Dosage: 0.1 %, UNK
  6. LEVOTHYROXINE SODIUM [Concomitant]
     Dosage: 25 UG, EACH MORNING
     Route: 048
  7. LEVOTHYROXINE SODIUM [Concomitant]
     Dosage: 50 UG, EACH MORNING
     Route: 048
  8. LEVOTHYROXINE SODIUM [Concomitant]
     Dosage: 100 UG, EACH MORNING
     Route: 048
  9. BISOPROLOL FUMARATE [Concomitant]
     Dosage: 10 MG, DAILY (1/D)
     Route: 048
  10. ESOMEPRAZOLE MAGNESIUM [Concomitant]
     Dosage: 20 MG, DAILY (1/D)
     Route: 048
  11. ATORVASTATIN CALCIUM [Concomitant]
     Dosage: 40 MG, DAILY (1/D)
     Route: 048
  12. BENDROFLUMETHIAZIDE [Concomitant]
     Dosage: 5 MG, DAILY (1/D)
     Route: 048
  13. VARDENAFIL [Concomitant]
     Dosage: 5 MG, DAILY (1/D)
     Route: 048
  14. HYDROCORTISONE [Concomitant]
  15. CALMURID [Concomitant]
     Dosage: 10 %, 2/D
     Route: 061

REACTIONS (1)
  - UPPER RESPIRATORY TRACT INFECTION [None]
